FAERS Safety Report 7765129-9 (Version None)
Quarter: 2011Q3

REPORT INFORMATION
  Report Type: 
  Country: None (occurrence: None)
  Receive Date: 20110830
  Receipt Date: 20110629
  Transmission Date: 20111222
  Serious: No
  Sender: FDA-Public Use
  Company Number: 11-1315

PATIENT
  Sex: Male

DRUGS (1)
  1. XEOMIN [Suspect]
     Indication: MUSCLE SPASTICITY
     Dosage: (400 IU, 1 IN 1 TOTAL),INTRAMUSCLAR
     Route: 030
     Dates: start: 20110401, end: 20110401

REACTIONS (1)
  - SKIN LESION [None]
